FAERS Safety Report 21260642 (Version 1)
Quarter: 2022Q3

REPORT INFORMATION
  Report Type: Spontaneous
  Country: AO (occurrence: AO)
  Receive Date: 20220826
  Receipt Date: 20220826
  Transmission Date: 20221026
  Serious: Yes (Other)
  Sender: FDA-Public Use
  Company Number: AO-JNJFOC-20220841504

PATIENT
  Age: 58 Year
  Sex: Male
  Weight: 158.90 kg

DRUGS (1)
  1. TOPIRAMATE [Suspect]
     Active Substance: TOPIRAMATE
     Indication: Weight decreased
     Route: 048
     Dates: start: 202208

REACTIONS (8)
  - Heart rate increased [Recovered/Resolved]
  - Nervousness [Unknown]
  - Speech disorder [Unknown]
  - Fatigue [Unknown]
  - Dizziness [Unknown]
  - Memory impairment [Unknown]
  - Feeling abnormal [Not Recovered/Not Resolved]
  - Off label use [Unknown]

NARRATIVE: CASE EVENT DATE: 20220801
